FAERS Safety Report 11544065 (Version 10)
Quarter: 2016Q3

REPORT INFORMATION
  Report Type: Spontaneous
  Country: GB (occurrence: GB)
  Receive Date: 20150924
  Receipt Date: 20160822
  Transmission Date: 20161109
  Serious: Yes (Other)
  Sender: FDA-Public Use
  Company Number: GB-ROCHE-1302381

PATIENT
  Sex: Female

DRUGS (5)
  1. ANASTROZOLE. [Concomitant]
     Active Substance: ANASTROZOLE
     Route: 065
     Dates: start: 201602
  2. HERCEPTIN [Suspect]
     Active Substance: TRASTUZUMAB
     Indication: PRODUCT USED FOR UNKNOWN INDICATION
     Route: 058
  3. HERCEPTIN [Suspect]
     Active Substance: TRASTUZUMAB
     Route: 058
  4. ANASTROZOLE. [Concomitant]
     Active Substance: ANASTROZOLE
     Route: 065
     Dates: end: 201601
  5. LETROZOLE. [Concomitant]
     Active Substance: LETROZOLE
     Route: 065
     Dates: start: 201602

REACTIONS (36)
  - Diarrhoea [Unknown]
  - Fatigue [Not Recovered/Not Resolved]
  - Sinus congestion [Unknown]
  - Nasal ulcer [Not Recovered/Not Resolved]
  - Oropharyngeal pain [Unknown]
  - Insomnia [Unknown]
  - Alopecia [Unknown]
  - Headache [Unknown]
  - Feeling abnormal [Unknown]
  - Breast pain [Unknown]
  - Palpitations [Unknown]
  - Wheezing [Unknown]
  - Musculoskeletal stiffness [Unknown]
  - Anaemia [Unknown]
  - Eczema [Unknown]
  - Nausea [Unknown]
  - Cough [Unknown]
  - Lacrimation increased [Unknown]
  - Breast tenderness [Unknown]
  - Arthralgia [Not Recovered/Not Resolved]
  - Mouth ulceration [Unknown]
  - Skin discolouration [Unknown]
  - Dyspnoea [Unknown]
  - Rash pruritic [Unknown]
  - Pallor [Unknown]
  - Varicose vein [Unknown]
  - Dyspnoea exertional [Not Recovered/Not Resolved]
  - Pain in extremity [Unknown]
  - Onychoclasis [Not Recovered/Not Resolved]
  - Depressed mood [Unknown]
  - Pollakiuria [Unknown]
  - Epistaxis [Unknown]
  - Breast cancer [Unknown]
  - Asthenia [Unknown]
  - Seasonal allergy [Unknown]
  - Upper respiratory tract infection [Unknown]
